FAERS Safety Report 19768858 (Version 1)
Quarter: 2021Q3

REPORT INFORMATION
  Report Type: Spontaneous
  Country: US (occurrence: US)
  Receive Date: 20210831
  Receipt Date: 20210831
  Transmission Date: 20211014
  Serious: No
  Sender: FDA-Public Use
  Company Number: US-PFIZER INC-2021487627

PATIENT
  Age: 89 Year
  Sex: Male

DRUGS (1)
  1. DETROL LA [Suspect]
     Active Substance: TOLTERODINE TARTRATE
     Indication: CYSTITIS
     Dosage: 2 MG, 2X/DAY
     Route: 048
     Dates: start: 2011

REACTIONS (2)
  - Off label use [Unknown]
  - Memory impairment [Unknown]
